FAERS Safety Report 9239391 (Version 2)
Quarter: 2013Q2

REPORT INFORMATION
  Report Type: Spontaneous
  Country: FR (occurrence: FR)
  Receive Date: 20130418
  Receipt Date: 20130516
  Transmission Date: 20140414
  Serious: Yes (Hospitalization, Other)
  Sender: FDA-Public Use
  Company Number: FR-ROCHE-1215563

PATIENT
  Age: 82 Year
  Sex: Male

DRUGS (6)
  1. LUCENTIS [Suspect]
     Indication: AGE-RELATED MACULAR DEGENERATION
     Route: 050
     Dates: start: 2011
  2. LUCENTIS [Suspect]
     Route: 050
     Dates: start: 20130328, end: 20130328
  3. AMLOR [Concomitant]
  4. COVERSYL [Concomitant]
  5. ALDACTAZINE [Concomitant]
  6. XATRAL [Concomitant]

REACTIONS (3)
  - Transient ischaemic attack [Recovering/Resolving]
  - Arrhythmia [Unknown]
  - Carotid artery stenosis [Unknown]
